FAERS Safety Report 5050264-9 (Version None)
Quarter: 2006Q2

REPORT INFORMATION
  Report Type: 
  Country: None (occurrence: None)
  Receive Date: 20060607
  Receipt Date: 20060629
  Transmission Date: 20061013
  Serious: Yes (Life-Threatening, Hospitalization)
  Sender: FDA-Public Use
  Company Number: 2002000251-FJ

PATIENT
  Age: 58 Year
  Sex: Male
  Weight: 52 kg

DRUGS (10)
  1. TACROLIMUS CAPSULES (TACROLIMUS CAPSULES) [Suspect]
     Indication: RENAL TRANSPLANT
     Dosage: SEE IMAGE
     Route: 048
     Dates: start: 20000208, end: 20010125
  2. TACROLIMUS CAPSULES (TACROLIMUS CAPSULES) [Suspect]
     Indication: RENAL TRANSPLANT
     Dosage: SEE IMAGE
     Route: 048
     Dates: start: 20011031, end: 20011212
  3. TACROLIMUS CAPSULES (TACROLIMUS CAPSULES) [Suspect]
     Indication: RENAL TRANSPLANT
     Dosage: SEE IMAGE
     Route: 048
     Dates: start: 20011213, end: 20020116
  4. TACROLIMUS CAPSULES (TACROLIMUS CAPSULES) [Suspect]
     Indication: RENAL TRANSPLANT
     Dosage: SEE IMAGE
     Route: 048
     Dates: start: 20010125
  5. TACROLIMUS CAPSULES (TACROLIMUS CAPSULES) [Suspect]
     Indication: RENAL TRANSPLANT
     Dosage: SEE IMAGE
     Route: 048
     Dates: start: 20020117
  6. BREDININ (MIZORIBINE) TABLET [Suspect]
     Indication: RENAL TRANSPLANT
     Dosage: 100 MG, D, ORAL; 125 MG, D, ORAL
     Route: 048
     Dates: start: 20000208, end: 20020116
  7. BREDININ (MIZORIBINE) TABLET [Suspect]
     Indication: RENAL TRANSPLANT
     Dosage: 100 MG, D, ORAL; 125 MG, D, ORAL
     Route: 048
     Dates: start: 20020117
  8. PREDNISOLONE [Concomitant]
  9. FUNGIZONE [Concomitant]
  10. INSULIN [Concomitant]

REACTIONS (3)
  - GASTROINTESTINAL DISORDER [None]
  - HERPES VIRUS INFECTION [None]
  - KAPOSI'S SARCOMA [None]
